FAERS Safety Report 5913113-X (Version None)
Quarter: 2008Q4

REPORT INFORMATION
  Report Type: 
  Country: None (occurrence: None)
  Receive Date: 20081008
  Receipt Date: 20081008
  Transmission Date: 20090506
  Serious: Yes (Life-Threatening, Disabling)
  Sender: FDA-Public Use
  Company Number: None

PATIENT
  Sex: Female
  Weight: 60 kg

DRUGS (1)
  1. ENBREL [Suspect]
     Dosage: 25 MG TWICE WEEK

REACTIONS (3)
  - BREAST CANCER FEMALE [None]
  - METASTASES TO LYMPH NODES [None]
  - UNEVALUABLE EVENT [None]
